FAERS Safety Report 5746084-X (Version None)
Quarter: 2008Q2

REPORT INFORMATION
  Report Type: 
  Country: None (occurrence: None)
  Receive Date: 20080522
  Receipt Date: 20070712
  Transmission Date: 20081010
  Serious: No
  Sender: FDA-Public Use
  Company Number: A0663696A

PATIENT

DRUGS (1)
  1. BACTROBAN [Suspect]
     Indication: PLASTIC SURGERY
     Route: 065

REACTIONS (1)
  - DRUG DISPENSING ERROR [None]
